FAERS Safety Report 7362272-3 (Version None)
Quarter: 2011Q1

REPORT INFORMATION
  Report Type: 
  Country: None (occurrence: None)
  Receive Date: 20110318
  Receipt Date: 20110221
  Transmission Date: 20110831
  Serious: No
  Sender: FDA-Public Use
  Company Number: US-B.I. PHARMACEUTICALS,INC./RIDGEFIELD-2011-BP-05855BP

PATIENT
  Sex: Female

DRUGS (6)
  1. BYSTOLIC [Concomitant]
     Indication: CARDIAC DISORDER
     Dosage: 20 MG
     Route: 048
  2. DIGOXIN [Concomitant]
     Indication: CARDIAC DISORDER
     Dosage: 125 MCG
     Route: 048
     Dates: start: 20110120
  3. TRIAMTERENE [Concomitant]
     Indication: JOINT SWELLING
     Dosage: 125 MCG
     Route: 048
     Dates: start: 20110120
  4. PRADAXA [Suspect]
     Indication: ATRIAL FIBRILLATION
     Dosage: 300 MG
     Route: 048
     Dates: start: 20110120
  5. FUROSEMIDE [Concomitant]
     Indication: JOINT SWELLING
     Dosage: 80 MG
     Route: 048
  6. BYSTOLIC [Concomitant]
     Dosage: 40 MG
     Route: 048
     Dates: start: 20110120

REACTIONS (2)
  - FATIGUE [None]
  - NASOPHARYNGITIS [None]
